FAERS Safety Report 4867235-5 (Version None)
Quarter: 2005Q4

REPORT INFORMATION
  Report Type: 
  Country: None (occurrence: None)
  Receive Date: 20051222
  Receipt Date: 20051213
  Transmission Date: 20060501
  Serious: Yes (Disabling, Other)
  Sender: FDA-Public Use
  Company Number: 2005142142

PATIENT
  Age: 46 Year
  Sex: Female
  Weight: 90.7194 kg

DRUGS (11)
  1. GABAPENTIN [Suspect]
     Indication: NERVE BLOCK
     Dosage: 900 MG (300 MG, 3 IN 1 D)
     Dates: start: 20050101
  2. NEURONTIN [Suspect]
     Indication: BURNING SENSATION
  3. LEXAPRO [Concomitant]
  4. PAMELOR [Concomitant]
  5. AVANDIA [Concomitant]
  6. SYNTHROID [Concomitant]
  7. METHADONE HCL [Concomitant]
  8. KLONOPIN [Concomitant]
  9. RESTORIL [Concomitant]
  10. VITAMIN D [Concomitant]
  11. CALCIUM WITH VITAMIN D (CALCIUM PHOSPHATE, CALCIUM SODIUM LACTATE, ERG [Concomitant]

REACTIONS (6)
  - ACROMEGALY [None]
  - BACK PAIN [None]
  - BRAIN NEOPLASM [None]
  - BURNING SENSATION [None]
  - DIZZINESS [None]
  - PITUITARY TUMOUR [None]
